FAERS Safety Report 20430635 (Version 1)
Quarter: 2022Q1

REPORT INFORMATION
  Report Type: Report from Study
  Country: FR (occurrence: FR)
  Receive Date: 20220204
  Receipt Date: 20220204
  Transmission Date: 20220423
  Serious: Yes (Hospitalization, Other)
  Sender: FDA-Public Use
  Company Number: FR-SERVIER-S20012932

PATIENT

DRUGS (10)
  1. PEGASPARGASE [Suspect]
     Active Substance: PEGASPARGASE
     Indication: Acute lymphocytic leukaemia
     Dosage: 3350 IU, QD, ON D4 AND D43
     Route: 042
     Dates: start: 20200926, end: 20201117
  2. ADRIAMYCIN [Concomitant]
     Active Substance: DOXORUBICIN HYDROCHLORIDE
     Indication: Acute lymphocytic leukaemia
     Dosage: 34 MG ON D1, D8, AND D15
     Route: 042
     Dates: start: 20200923, end: 20201007
  3. TN UNSPECIFIED [Concomitant]
     Indication: Acute lymphocytic leukaemia
     Dosage: 2 MG ON D1, D8, D15, D43, AND D50
     Route: 042
     Dates: start: 20200923, end: 20201124
  4. TN UNSPECIFIED [Concomitant]
     Indication: Acute lymphocytic leukaemia
     Dosage: 13.2 MG ON D1 TO D7,  AND D15 TO D21
     Route: 048
     Dates: start: 20200923, end: 20201013
  5. TN UNSPECIFIED [Concomitant]
     Indication: Acute lymphocytic leukaemia
     Dosage: 1330 MG ON D29
     Route: 042
     Dates: start: 20201103
  6. TN UNSPECIFIED [Concomitant]
     Indication: Acute lymphocytic leukaemia
     Dosage: 100 MG ON D31 TO D34, AND D38 AND D42
     Route: 042
     Dates: start: 20201105, end: 20201115
  7. TN UNSPECIFIED [Concomitant]
     Dosage: 30 MG ON D4 AND D31
     Route: 037
     Dates: start: 20200926, end: 20201105
  8. TN UNSPECIFIED [Concomitant]
     Indication: Acute lymphocytic leukaemia
     Dosage: 15 MG ON D4 AND D31
     Route: 037
     Dates: start: 20200926, end: 20201105
  9. TN UNSPECIFIED [Concomitant]
     Indication: Acute lymphocytic leukaemia
     Dosage: 15 MG ON D4 AND D31
     Route: 037
     Dates: start: 20200926, end: 20201105
  10. TN UNSPECIFIED [Concomitant]
     Indication: Acute lymphocytic leukaemia
     Dosage: 80 MG ON D21-D42
     Route: 048
     Dates: start: 20201103, end: 20201116

REACTIONS (2)
  - Mechanical ileus [Recovering/Resolving]
  - Hyperbilirubinaemia [Recovered/Resolved]

NARRATIVE: CASE EVENT DATE: 20201126
